FAERS Safety Report 8890367 (Version 2)
Quarter: 2012Q4

REPORT INFORMATION
  Report Type: 
  Country: US (occurrence: US)
  Receive Date: 20121106
  Receipt Date: 20121109
  Transmission Date: 20130627
  Serious: Yes (Hospitalization, Other)
  Sender: FDA-Public Use
  Company Number: US-B.I. PHARMACEUTICALS,INC./RIDGEFIELD-2012-BP-27162BP

PATIENT
  Age: 70 None
  Sex: Male
  Weight: 95 kg

DRUGS (10)
  1. SPIRIVA [Suspect]
     Indication: CHRONIC OBSTRUCTIVE PULMONARY DISEASE
     Dosage: 18 mcg
     Route: 055
     Dates: start: 201208
  2. LORAZEPAM [Concomitant]
     Indication: ANXIETY
     Dosage: 1 mg
     Dates: start: 2010
  3. HYDRALAZINE [Concomitant]
     Indication: HYPERTENSION
     Dosage: 75 mg
     Route: 048
     Dates: start: 2010
  4. AMLODIPINE BESYLATE [Concomitant]
     Indication: HYPERTENSION
     Dosage: 5 mg
     Route: 048
     Dates: start: 2007
  5. BENAZEPRIL [Concomitant]
     Indication: HYPERTENSION
     Dosage: 40 mg
     Route: 048
     Dates: start: 2007
  6. PANTOPRAZOLE [Concomitant]
     Indication: ABDOMINAL DISCOMFORT
     Dosage: 80 mg
     Route: 048
     Dates: start: 2010
  7. RANATIDINE [Concomitant]
     Indication: DUODENAL ULCER
     Dosage: 150 mg
     Route: 048
     Dates: start: 2010
  8. SERTRALINE [Concomitant]
     Indication: DEPRESSION
     Dosage: 100 mg
     Route: 048
     Dates: start: 2010
  9. SUCRALFATE [Concomitant]
     Indication: DUODENAL ULCER
     Dosage: 4 g
     Route: 048
     Dates: start: 2010
  10. ASPIRIN [Concomitant]
     Indication: CARDIAC DISORDER
     Dosage: 81 mg
     Route: 048
     Dates: start: 2010

REACTIONS (6)
  - Haematochezia [Unknown]
  - Colitis [Unknown]
  - Oesophageal disorder [Recovered/Resolved]
  - Product quality issue [Unknown]
  - Drug ineffective [Unknown]
  - Product quality issue [Unknown]
